FAERS Safety Report 8537430-2 (Version None)
Quarter: 2012Q3

REPORT INFORMATION
  Report Type: 
  Country: None (occurrence: None)
  Receive Date: 20120725
  Receipt Date: 20120719
  Transmission Date: 20120928
  Serious: Yes (Hospitalization, Other)
  Sender: FDA-Public Use
  Company Number: TR-PFIZER INC-2012147170

PATIENT
  Age: 37 Year
  Sex: Male

DRUGS (2)
  1. VIAGRA [Suspect]
     Indication: ERECTILE DYSFUNCTION
     Dosage: 50 MG, 3-4 TIMES PER MONTH
     Route: 048
  2. LEVOTHYROXINE SODIUM [Concomitant]
     Indication: HYPOTHYROIDISM
     Dosage: 100 UG, 1X/DAY
     Route: 048

REACTIONS (5)
  - DEAFNESS [None]
  - NASAL CONGESTION [None]
  - EAR DISORDER [None]
  - TACHYCARDIA [None]
  - BURNING SENSATION [None]
